FAERS Safety Report 4378406-9 (Version None)
Quarter: 2004Q2

REPORT INFORMATION
  Report Type: 
  Country: None (occurrence: None)
  Receive Date: 20040616
  Receipt Date: 20040604
  Transmission Date: 20050107
  Serious: Yes (Hospitalization)
  Sender: FDA-Public Use
  Company Number: BE-BRISTOL-MYERS SQUIBB COMPANY-12607073

PATIENT

DRUGS (2)
  1. CEFEPIME HCL [Suspect]
  2. PHENYTOIN [Interacting]

REACTIONS (2)
  - DRUG INTERACTION [None]
  - DRUG LEVEL FLUCTUATING [None]
